FAERS Safety Report 9505995 (Version 1)
Quarter: 2013Q1

REPORT INFORMATION
  Report Type: Spontaneous
  Country: US (occurrence: None)
  Receive Date: 20130305
  Receipt Date: 20130305
  Transmission Date: 20140127
  Serious: No
  Sender: FDA-Public Use
  Company Number: 163-21880-11070770

PATIENT
  Age: 54 Year
  Sex: Female

DRUGS (2)
  1. REVLIMID (LENALIDOMIDE) (15 MILLIGRAM, CAPSULES) [Suspect]
     Indication: LYMPHOMA
     Dosage: 15 MG, DAILY X 21 DAYS, PO
     Route: 048
     Dates: start: 20110610
  2. RITUXAN (RITUXIMAB) (UNKNOWN) [Concomitant]

REACTIONS (9)
  - White blood cell count decreased [None]
  - Neutrophil count decreased [None]
  - Neutropenia [None]
  - Diarrhoea [None]
  - Pruritus [None]
  - Fatigue [None]
  - Upper respiratory tract infection [None]
  - Haemoglobin decreased [None]
  - Platelet count decreased [None]
